FAERS Safety Report 10341042 (Version 2)
Quarter: 2014Q3

REPORT INFORMATION
  Report Type: Spontaneous
  Country: US (occurrence: US)
  Receive Date: 20140724
  Receipt Date: 20140724
  Transmission Date: 20150326
  Serious: No
  Sender: FDA-Public Use
  Company Number: US-MYLANLABS-2013S1027925

PATIENT
  Sex: Female
  Weight: 73.03 kg

DRUGS (4)
  1. LEVOTHYROXINE SODIUM TABLETS, USP [Suspect]
     Active Substance: LEVOTHYROXINE SODIUM
     Indication: HYPOTHYROIDISM
     Route: 048
     Dates: end: 201311
  2. LEVOTHYROXINE SODIUM TABLETS, USP [Suspect]
     Active Substance: LEVOTHYROXINE SODIUM
     Indication: HYPOTHYROIDISM
     Route: 048
     Dates: start: 201401, end: 201402
  3. LEVOTHYROXINE SODIUM TABLETS, USP [Suspect]
     Active Substance: LEVOTHYROXINE SODIUM
     Indication: HYPOTHYROIDISM
     Route: 048
     Dates: start: 20131011
  4. LEVOTHYROXINE SODIUM TABLETS, USP [Suspect]
     Active Substance: LEVOTHYROXINE SODIUM
     Indication: HYPOTHYROIDISM
     Route: 048
     Dates: start: 201402

REACTIONS (10)
  - Urinary incontinence [Recovered/Resolved]
  - Muscle spasms [Recovered/Resolved]
  - Hypersensitivity [Unknown]
  - Dyspnoea [Recovered/Resolved]
  - Night sweats [Recovered/Resolved]
  - Muscle spasms [Unknown]
  - Unevaluable event [Not Recovered/Not Resolved]
  - Swelling [Unknown]
  - Insomnia [Recovered/Resolved]
  - Blood thyroid stimulating hormone decreased [Unknown]

NARRATIVE: CASE EVENT DATE: 2013
